FAERS Safety Report 7283029-8 (Version None)
Quarter: 2011Q1

REPORT INFORMATION
  Report Type: 
  Country: None (occurrence: None)
  Receive Date: 20110209
  Receipt Date: 20110131
  Transmission Date: 20110831
  Serious: Yes (Other)
  Sender: FDA-Public Use
  Company Number: IT-JNJFOC-JRFBEL2000001394

PATIENT
  Age: 75 Year
  Sex: Female

DRUGS (6)
  1. WARFARIN [Interacting]
     Indication: ATRIAL FIBRILLATION
     Route: 048
  2. FUROSEMIDE [Concomitant]
  3. MICONAZOLE [Suspect]
     Indication: ORAL CANDIDIASIS
     Dosage: 125 MG (5 ML) THRICE A DAY
     Route: 048
  4. DIGOXIN [Concomitant]
  5. WARFARIN [Interacting]
     Route: 048
  6. MICONAZOLE [Suspect]
     Route: 048

REACTIONS (4)
  - INTERNATIONAL NORMALISED RATIO INCREASED [None]
  - DRUG INTERACTION [None]
  - PETECHIAE [None]
  - ECCHYMOSIS [None]
